FAERS Safety Report 8340395-X (Version None)
Quarter: 2012Q2

REPORT INFORMATION
  Report Type: 
  Country: None (occurrence: None)
  Receive Date: 20120507
  Receipt Date: 20090626
  Transmission Date: 20120825
  Serious: No
  Sender: FDA-Public Use
  Company Number: US-TEVA-2009006912

PATIENT
  Sex: Female
  Weight: 77.18 kg

DRUGS (7)
  1. BENADRYL [Concomitant]
  2. RITUXAN [Concomitant]
     Dosage: 66.6667 MILLIGRAM;
     Dates: start: 20090427
  3. DECADRON [Concomitant]
  4. TYLENOL (CAPLET) [Concomitant]
  5. PEPCID [Concomitant]
  6. ALOXI [Concomitant]
  7. TREANDA [Suspect]
     Indication: MANTLE CELL LYMPHOMA RECURRENT
     Route: 042
     Dates: start: 20090427, end: 20090518

REACTIONS (7)
  - PAIN [None]
  - CHILLS [None]
  - RASH ERYTHEMATOUS [None]
  - HEADACHE [None]
  - FACE OEDEMA [None]
  - FLUSHING [None]
  - PYREXIA [None]
